FAERS Safety Report 22532531 (Version 2)
Quarter: 2023Q2

REPORT INFORMATION
  Report Type: Spontaneous
  Country: US (occurrence: US)
  Receive Date: 20230607
  Receipt Date: 20230619
  Transmission Date: 20230721
  Serious: Yes (Life-Threatening, Hospitalization)
  Sender: FDA-Public Use
  Company Number: US-TEVA-2023-US-2893244

PATIENT
  Age: 76 Year
  Sex: Female

DRUGS (4)
  1. HYDROMORPHONE [Suspect]
     Active Substance: HYDROMORPHONE
     Indication: Product used for unknown indication
     Dosage: 1200 MG
     Route: 058
  2. NALOXONE [Suspect]
     Active Substance: NALOXONE
     Indication: Loss of consciousness
     Route: 065
  3. CLONIDINE [Suspect]
     Active Substance: CLONIDINE
     Indication: Product used for unknown indication
     Dosage: 32 MG
     Route: 058
  4. BUPIVACAINE [Suspect]
     Active Substance: BUPIVACAINE
     Indication: Product used for unknown indication
     Dosage: 600 MG
     Route: 058

REACTIONS (5)
  - Bradycardia [Unknown]
  - Loss of consciousness [Unknown]
  - Drug ineffective [Unknown]
  - Accidental overdose [Unknown]
  - Incorrect route of product administration [Unknown]
